FAERS Safety Report 8838811 (Version 1)
Quarter: 2012Q4

REPORT INFORMATION
  Report Type: 
  Country: GB (occurrence: GB)
  Receive Date: 20121014
  Receipt Date: 20121014
  Transmission Date: 20130627
  Serious: Yes (Other)
  Sender: FDA-Public Use
  Company Number: GB-TEVA-363159ISR

PATIENT
  Age: 74 Year
  Sex: Female

DRUGS (3)
  1. METFORMIN [Suspect]
     Indication: DIABETES MELLITUS
     Dosage: 1300 Milligram Daily; dose: 500 mane, 800 mg nocte
     Route: 065
  2. LANTUS [Suspect]
     Indication: DIABETES MELLITUS
     Route: 058
  3. LANTUS [Suspect]
     Indication: DEVICE THERAPY

REACTIONS (3)
  - Hypoglycaemia [Recovered/Resolved]
  - Visual impairment [Recovered/Resolved]
  - Hyperhidrosis [Recovered/Resolved]
